FAERS Safety Report 10149821 (Version 1)
Quarter: 2014Q2

REPORT INFORMATION
  Report Type: Spontaneous
  Country: GB (occurrence: GB)
  Receive Date: 20140502
  Receipt Date: 20140502
  Transmission Date: 20141212
  Serious: Yes (Other)
  Sender: FDA-Public Use
  Company Number: GB-ASTRAZENECA-2014SE28380

PATIENT
  Age: 80 Year
  Sex: Female
  Weight: 66.9 kg

DRUGS (15)
  1. LISINOPRIL [Suspect]
     Route: 048
     Dates: start: 20140321
  2. ACIDEX [Concomitant]
     Dates: start: 20140227, end: 20140311
  3. ACIDEX [Concomitant]
     Dates: start: 20140407
  4. CO-CODAMOL [Concomitant]
     Dates: start: 20140113, end: 20140127
  5. CO-CODAMOL [Concomitant]
     Dates: start: 20140227, end: 20140313
  6. FUROSEMIDE [Concomitant]
     Dates: start: 20140113
  7. GLICLAZIDE [Concomitant]
     Dates: start: 20140113
  8. INSTILLAGEL [Concomitant]
     Dates: start: 20140113, end: 20140329
  9. LEVOTHYROXINE [Concomitant]
     Dates: start: 20140113
  10. METFORMIN [Concomitant]
     Dates: start: 20140113
  11. NITROFURANTOIN [Concomitant]
     Dates: start: 20140113
  12. OMEPRAZOLE [Concomitant]
     Dates: start: 20140113
  13. SIMVASTATIN [Concomitant]
     Dates: start: 20140113
  14. LAXIDO [Concomitant]
     Dates: start: 20131218, end: 20140212
  15. LAXIDO [Concomitant]
     Dates: start: 20140227, end: 20140329

REACTIONS (1)
  - Glomerular filtration rate decreased [Unknown]
